FAERS Safety Report 16671985 (Version 2)
Quarter: 2019Q3

REPORT INFORMATION
  Report Type: Spontaneous
  Country: US (occurrence: US)
  Receive Date: 20190806
  Receipt Date: 20190920
  Transmission Date: 20191004
  Serious: No
  Sender: FDA-Public Use
  Company Number: US-GILEAD-2019-0422138

PATIENT
  Age: 59 Year
  Sex: Male
  Weight: 58.5 kg

DRUGS (8)
  1. TRIAMCINOLONE [Concomitant]
     Active Substance: TRIAMCINOLONE
  2. BUDESONIDE. [Concomitant]
     Active Substance: BUDESONIDE
  3. EPCLUSA [Suspect]
     Active Substance: SOFOSBUVIR\VELPATASVIR
     Indication: CHRONIC HEPATITIS C
     Dosage: UNK
     Route: 065
     Dates: start: 20190610, end: 20190902
  4. PREDNISONE. [Concomitant]
     Active Substance: PREDNISONE
  5. LIDOCAINE. [Concomitant]
     Active Substance: LIDOCAINE
  6. ALBUTEROL HFA [Concomitant]
     Active Substance: ALBUTEROL SULFATE
  7. FLOVENT [Concomitant]
     Active Substance: FLUTICASONE PROPIONATE
  8. NICOTINE POLACRILEX [Concomitant]
     Active Substance: NICOTINE

REACTIONS (2)
  - Hypokalaemia [Recovered/Resolved]
  - Weight decreased [Unknown]

NARRATIVE: CASE EVENT DATE: 201906
